FAERS Safety Report 7203826-4 (Version None)
Quarter: 2010Q4

REPORT INFORMATION
  Report Type: 
  Country: None (occurrence: None)
  Receive Date: 20101230
  Receipt Date: 20101227
  Transmission Date: 20110411
  Serious: Yes (Hospitalization, Other)
  Sender: FDA-Public Use
  Company Number: JP-BRACCO-004357

PATIENT
  Age: 66 Year
  Sex: Male

DRUGS (1)
  1. IOPAMIDOL [Suspect]
     Indication: COMPUTERISED TOMOGRAM
     Dosage: 40-50 ML ADMINISTERED INTO THE LEFT BRACHIAL VEIN
     Route: 042
     Dates: start: 20080619, end: 20080619

REACTIONS (7)
  - BLOOD BLISTER [None]
  - INJECTION SITE EXTRAVASATION [None]
  - INJECTION SITE SWELLING [None]
  - LIVEDO RETICULARIS [None]
  - PAIN IN EXTREMITY [None]
  - PURPURA [None]
  - SKIN ULCER [None]
